FAERS Safety Report 13855037 (Version 2)
Quarter: 2017Q4

REPORT INFORMATION
  Report Type: Spontaneous
  Country: JP (occurrence: JP)
  Receive Date: 20170810
  Receipt Date: 20171009
  Transmission Date: 20180320
  Serious: Yes (Other)
  Sender: FDA-Public Use
  Company Number: JP-PFIZER INC-2017336300

PATIENT
  Age: 82 Year
  Sex: Female
  Weight: 35.5 kg

DRUGS (3)
  1. FARMORUBICIN [Suspect]
     Active Substance: EPIRUBICIN HYDROCHLORIDE
     Indication: HEPATOCELLULAR CARCINOMA
     Dosage: 35 MG, DAILY
     Route: 013
     Dates: start: 20170714, end: 20170714
  2. IOPAMIRON [Concomitant]
     Active Substance: IOPAMIDOL
     Dosage: UNK
  3. LIPIODOL [Concomitant]
     Active Substance: ETHIODIZED OIL
     Dosage: UNK

REACTIONS (3)
  - Blood pressure decreased [Recovered/Resolved]
  - Hypersensitivity [Recovered/Resolved]
  - Bradycardia [Recovered/Resolved]

NARRATIVE: CASE EVENT DATE: 20170714
